FAERS Safety Report 8016981-3 (Version None)
Quarter: 2012Q1

REPORT INFORMATION
  Report Type: 
  Country: None (occurrence: None)
  Receive Date: 20120102
  Receipt Date: 20111228
  Transmission Date: 20120608
  Serious: Yes (Other)
  Sender: FDA-Public Use
  Company Number: PHEH2009US07547

PATIENT
  Sex: Female

DRUGS (7)
  1. CHEMOTHERAPEUTICS NOS [Concomitant]
  2. DYAZIDE [Concomitant]
     Dosage: 25 MG, UNK
  3. BACITRACIN [Concomitant]
  4. TRIAMTERENE [Concomitant]
  5. ARIMIDEX [Concomitant]
     Dosage: 1 MG, QD
  6. FOSAMAX [Suspect]
  7. ZOMETA [Suspect]
     Indication: BONE LESION
     Dosage: UKN, QMO

REACTIONS (36)
  - ANXIETY [None]
  - PERIODONTITIS [None]
  - ALOPECIA [None]
  - PARAESTHESIA [None]
  - GINGIVAL INFECTION [None]
  - HYPERTENSION [None]
  - ADNEXA UTERI MASS [None]
  - DECREASED INTEREST [None]
  - GINGIVAL PAIN [None]
  - POLLAKIURIA [None]
  - HOT FLUSH [None]
  - SKIN EXFOLIATION [None]
  - OSTEONECROSIS OF JAW [None]
  - ERYTHEMA [None]
  - BRONCHITIS VIRAL [None]
  - RHINITIS [None]
  - GENERAL PHYSICAL HEALTH DETERIORATION [None]
  - PAIN [None]
  - DYSGEUSIA [None]
  - ANAEMIA [None]
  - IMPAIRED HEALING [None]
  - BREAST CANCER [None]
  - GRANULOMA [None]
  - SPONDYLITIS [None]
  - OVARIAN CYST [None]
  - UTERINE LEIOMYOMA [None]
  - OSTEOPOROSIS [None]
  - INTERVERTEBRAL DISC PROTRUSION [None]
  - OSTEOARTHRITIS [None]
  - ARTHRALGIA [None]
  - LARYNGITIS [None]
  - RENAL FAILURE [None]
  - BONE LESION [None]
  - DEVICE BREAKAGE [None]
  - NECROSIS [None]
  - HYDRONEPHROSIS [None]
